FAERS Safety Report 4637866-6 (Version None)
Quarter: 2005Q2

REPORT INFORMATION
  Report Type: 
  Country: None (occurrence: None)
  Receive Date: 20050328
  Receipt Date: 20050126
  Transmission Date: 20051028
  Serious: No
  Sender: FDA-Public Use
  Company Number: US_0502112199

PATIENT
  Age: 15 Year
  Sex: Male

DRUGS (2)
  1. STRATTERA [Suspect]
     Dosage: 40 MG DAY
     Dates: start: 20050112
  2. ADDERALL 10 [Concomitant]

REACTIONS (1)
  - GASTROINTESTINAL PAIN [None]
